FAERS Safety Report 4302038-1 (Version None)
Quarter: 2004Q1

REPORT INFORMATION
  Report Type: 
  Country: None (occurrence: None)
  Receive Date: 20040223
  Receipt Date: 20021108
  Transmission Date: 20041129
  Serious: Yes (Hospitalization)
  Sender: FDA-Public Use
  Company Number: PL-ROCHE-325053

PATIENT
  Age: 22 Year
  Sex: Male
  Weight: 71 kg

DRUGS (16)
  1. DACLIZUMAB [Suspect]
     Route: 042
     Dates: start: 20020925, end: 20020925
  2. DACLIZUMAB [Suspect]
     Route: 042
     Dates: start: 20021010, end: 20021120
  3. MYCOPHENOLATE MOFETIL [Suspect]
     Route: 048
     Dates: start: 20020925, end: 20021224
  4. CYCLOSPORINE [Suspect]
     Route: 065
     Dates: start: 20021030
  5. CYCLOSPORINE [Suspect]
     Route: 065
     Dates: start: 20021209, end: 20021224
  6. PREDNISONE [Concomitant]
     Dates: start: 20021024
  7. ACYCLOVIR [Concomitant]
     Dates: start: 20020928
  8. NYSTATIN [Concomitant]
     Dates: start: 20020928, end: 20021224
  9. COTRIMOXAZOL [Concomitant]
     Dates: start: 20020928, end: 20021224
  10. RANITIDINE [Concomitant]
     Dates: start: 20020928
  11. VALPROATE SODIUM [Concomitant]
     Dosage: STARTED PRIOR TO TRANSPLANTATION.
     Dates: start: 20020925
  12. MEPROLOL [Concomitant]
     Dates: start: 20021024
  13. AMLODIPINE [Concomitant]
     Dates: start: 20020925
  14. FLUCONAZOLE [Concomitant]
     Dates: start: 20021209
  15. AMOXICILLIN AND CLAVULANATE POTASSIUM [Concomitant]
     Dates: start: 20021213, end: 20030102
  16. TEICOPLANINE [Concomitant]
     Route: 042
     Dates: start: 20030103

REACTIONS (2)
  - RENAL ANEURYSM [None]
  - URINARY TRACT INFECTION [None]
